FAERS Safety Report 13438520 (Version 3)
Quarter: 2017Q3

REPORT INFORMATION
  Report Type: Spontaneous
  Country: US (occurrence: US)
  Receive Date: 20170413
  Receipt Date: 20170828
  Transmission Date: 20171127
  Serious: Yes (Death, Hospitalization)
  Sender: FDA-Public Use
  Company Number: US-PFIZER INC-2017160715

PATIENT
  Age: 29 Year
  Sex: Female

DRUGS (2)
  1. MIFEPREX [Suspect]
     Active Substance: MIFEPRISTONE
     Indication: ABORTION INDUCED
     Dosage: 200 MG, UNK
     Route: 048
     Dates: start: 2008
  2. MISOPROSTOL. [Suspect]
     Active Substance: MISOPROSTOL
     Indication: ABORTION INDUCED
     Dosage: 800 UG, UNK
     Route: 067
     Dates: start: 2008

REACTIONS (5)
  - Acute respiratory distress syndrome [Fatal]
  - Product use in unapproved indication [Fatal]
  - Hypotension [Fatal]
  - Clostridial sepsis [Fatal]
  - Endometritis [Fatal]

NARRATIVE: CASE EVENT DATE: 2008
